FAERS Safety Report 10092258 (Version 2)
Quarter: 2014Q2

REPORT INFORMATION
  Report Type: Spontaneous
  Country: US (occurrence: US)
  Receive Date: 20140421
  Receipt Date: 20140421
  Transmission Date: 20141212
  Serious: No
  Sender: FDA-Public Use
  Company Number: US-SANOFI-AVENTIS-2013SA026234

PATIENT
  Age: 58 Year
  Sex: Male
  Weight: 72 kg

DRUGS (5)
  1. ALLEGRA [Suspect]
     Indication: HYPERSENSITIVITY
     Dosage: TAKEN FROM- LAST WEEK
     Route: 048
     Dates: start: 20130306, end: 20130312
  2. METFORMIN [Concomitant]
  3. ATENOLOL [Concomitant]
  4. GLIMEPIRIDE [Concomitant]
  5. BENAZEPRIL [Concomitant]

REACTIONS (2)
  - Insomnia [Not Recovered/Not Resolved]
  - Drug ineffective [Unknown]
